FAERS Safety Report 11606706 (Version 1)
Quarter: 2015Q3

REPORT INFORMATION
  Report Type: Spontaneous
  Country: US (occurrence: US)
  Receive Date: 20150916
  Receipt Date: 20150916
  Transmission Date: 20151125
  Serious: No
  Sender: FDA-Public Use
  Company Number: US-ELI_LILLY_AND_COMPANY-US201402001775

PATIENT
  Sex: Male

DRUGS (8)
  1. OXYCODONE [Concomitant]
     Active Substance: OXYCODONE
  2. TRAZODONE [Concomitant]
     Active Substance: TRAZODONE HYDROCHLORIDE
     Indication: INSOMNIA
  3. SIMVASTATIN. [Concomitant]
     Active Substance: SIMVASTATIN
  4. TRAMADOL. [Concomitant]
     Active Substance: TRAMADOL
  5. METFORMIN [Concomitant]
     Active Substance: METFORMIN HYDROCHLORIDE
     Dosage: UNK, TID
  6. FENOFIBRATE. [Concomitant]
     Active Substance: FENOFIBRATE
  7. HUMALOG [Suspect]
     Active Substance: INSULIN LISPRO
     Indication: TYPE 2 DIABETES MELLITUS
     Dosage: UNK
     Route: 065
  8. GABAPENTIN. [Concomitant]
     Active Substance: GABAPENTIN

REACTIONS (3)
  - Blood glucose decreased [Unknown]
  - Vision blurred [Unknown]
  - Depression [Unknown]
